FAERS Safety Report 5874972-2 (Version None)
Quarter: 2008Q3

REPORT INFORMATION
  Report Type: 
  Country: None (occurrence: None)
  Receive Date: 20080908
  Receipt Date: 20080908
  Transmission Date: 20090109
  Serious: No
  Sender: FDA-Public Use
  Company Number: None

PATIENT
  Age: 40 Year
  Sex: Female
  Weight: 52.1637 kg

DRUGS (1)
  1. MEFLOQUINE HCI 250 MG TABLETS BARR LABORATORIES INC. [Suspect]
     Indication: MALARIA PROPHYLAXIS
     Dosage: 1 TABLET ONCE A WEEK PO
     Route: 048
     Dates: start: 20070804, end: 20080126

REACTIONS (5)
  - AMNESIA [None]
  - APHASIA [None]
  - DEPRESSION [None]
  - DISTURBANCE IN ATTENTION [None]
  - THINKING ABNORMAL [None]
